FAERS Safety Report 8913048 (Version 1)
Quarter: 2012Q4

REPORT INFORMATION
  Report Type: Spontaneous
  Country: US (occurrence: None)
  Receive Date: 20121113
  Receipt Date: 20121113
  Transmission Date: 20130627
  Serious: Yes (Hospitalization)
  Sender: FDA-Public Use
  Company Number: 2012SUN00218

PATIENT
  Age: 46 Year
  Sex: Female

DRUGS (4)
  1. OXALIPLATIN [Suspect]
     Indication: ADENOCARCINOMA OF COLON STAGE III
  2. OXALIPLATIN [Suspect]
     Indication: GASTRIC CANCER STAGE III
  3. 5-FLOROURACIL (5-FLOROURACIL) [Concomitant]
  4. LEUCOVORIN (LEUCOVORIN) [Concomitant]

REACTIONS (4)
  - Ototoxicity [None]
  - Hepatocellular injury [None]
  - Tinnitus [None]
  - Vertigo [None]
